FAERS Safety Report 8149954 (Version 2)
Quarter: 2013Q2

REPORT INFORMATION
  Report Type: Spontaneous
  Country: US (occurrence: US)
  Receive Date: 20110922
  Receipt Date: 20130417
  Transmission Date: 20140414
  Serious: No
  Sender: FDA-Public Use
  Company Number: US-ASTRAZENECA-2011SE31100

PATIENT
  Age: 41 Year
  Sex: Female

DRUGS (9)
  1. SEROQUEL [Suspect]
     Indication: POST-TRAUMATIC STRESS DISORDER
     Route: 048
     Dates: start: 201011
  2. SEROQUEL [Suspect]
     Indication: INSOMNIA
     Route: 048
     Dates: start: 201011
  3. SEROQUEL [Suspect]
     Indication: ANXIETY
     Route: 048
     Dates: start: 201011
  4. VIMOVO [Suspect]
     Route: 048
  5. KLONOPIN [Concomitant]
  6. XANAX [Concomitant]
  7. PROPANOLOL [Concomitant]
  8. LAMICTAL [Concomitant]
  9. PAXIL [Concomitant]

REACTIONS (7)
  - Decreased appetite [Unknown]
  - Night sweats [Unknown]
  - Insomnia [Unknown]
  - Headache [Unknown]
  - Off label use [Unknown]
  - Drug dose omission [Unknown]
  - Drug ineffective [Unknown]
